FAERS Safety Report 9494062 (Version 1)
Quarter: 2013Q3

REPORT INFORMATION
  Report Type: Spontaneous
  Country: US (occurrence: None)
  Receive Date: 20130829
  Receipt Date: 20130829
  Transmission Date: 20140515
  Serious: Yes (Life-Threatening)
  Sender: FDA-Public Use
  Company Number: None

PATIENT
  Age: 38 Year
  Sex: Male
  Weight: 88.45 kg

DRUGS (2)
  1. RISPERDAL [Suspect]
     Indication: SCHIZOPHRENIA
     Dosage: 3-6MG^S 1 PILL ONCE DAILY ORALLY
     Route: 048
     Dates: start: 20050601, end: 20070601
  2. ABILIFY [Concomitant]

REACTIONS (2)
  - Lip and/or oral cavity cancer [None]
  - Vomiting [None]
